FAERS Safety Report 4862206-7 (Version None)
Quarter: 2005Q4

REPORT INFORMATION
  Report Type: 
  Country: None (occurrence: None)
  Receive Date: 20051221
  Receipt Date: 20051031
  Transmission Date: 20060501
  Serious: Yes (Hospitalization)
  Sender: FDA-Public Use
  Company Number: US-AMGEN-US156130

PATIENT
  Age: 26 Year
  Sex: Male

DRUGS (7)
  1. ENBREL [Suspect]
     Indication: PSORIASIS
     Route: 058
     Dates: start: 20050426, end: 20050901
  2. ZOLOFT [Concomitant]
  3. MULTIVITAMIN [Concomitant]
  4. ZINC [Concomitant]
  5. PREVACID [Concomitant]
  6. ASCORBIC ACID [Concomitant]
  7. PERCOCET [Concomitant]

REACTIONS (7)
  - CATHETER RELATED COMPLICATION [None]
  - COAGULOPATHY [None]
  - FOLLICULITIS [None]
  - FURUNCLE [None]
  - PNEUMONIA [None]
  - SEPTIC SHOCK [None]
  - STAPHYLOCOCCAL SEPSIS [None]
